FAERS Safety Report 11232872 (Version 3)
Quarter: 2015Q3

REPORT INFORMATION
  Report Type: Report from Study
  Country: US (occurrence: US)
  Receive Date: 20150701
  Receipt Date: 20150817
  Transmission Date: 20151125
  Serious: Yes (Hospitalization)
  Sender: FDA-Public Use
  Company Number: US-EISAI MEDICAL RESEARCH-EC-2015-007136

PATIENT
  Sex: Female
  Weight: 86.4 kg

DRUGS (19)
  1. DIFLUCAN [Concomitant]
     Active Substance: FLUCONAZOLE
  2. LENVIMA [Suspect]
     Active Substance: LENVATINIB
     Indication: THYROID CANCER
     Route: 048
     Dates: start: 20150519, end: 2015
  3. METFORMIN [Concomitant]
     Active Substance: METFORMIN HYDROCHLORIDE
  4. TRICOR [Concomitant]
     Active Substance: FENOFIBRATE
  5. CELEXA [Concomitant]
     Active Substance: CITALOPRAM HYDROBROMIDE
  6. CEFDINIR. [Concomitant]
     Active Substance: CEFDINIR
  7. MUCINEX-D [Concomitant]
  8. SYNTHROID [Concomitant]
     Active Substance: LEVOTHYROXINE SODIUM
  9. NORCO [Concomitant]
     Active Substance: ACETAMINOPHEN\HYDROCODONE BITARTRATE
  10. AMBIEN [Concomitant]
     Active Substance: ZOLPIDEM TARTRATE
  11. ACIDOPHILUS [Concomitant]
     Active Substance: LACTOBACILLUS ACIDOPHILUS
  12. VITAMIN D [Concomitant]
     Active Substance: CHOLECALCIFEROL
  13. SIMVASTATIN. [Concomitant]
     Active Substance: SIMVASTATIN
  14. ALBUTEROL SULFATE. [Concomitant]
     Active Substance: ALBUTEROL SULFATE
  15. ADVIL [Concomitant]
     Active Substance: IBUPROFEN
  16. PREDNISONE. [Concomitant]
     Active Substance: PREDNISONE
  17. PROMETHAZINE/CODEINE [Concomitant]
     Active Substance: CODEINE\PROMETHAZINE
  18. ONGLYZA [Concomitant]
     Active Substance: SAXAGLIPTIN HYDROCHLORIDE
  19. MULTIVITAMIN [Concomitant]
     Active Substance: VITAMINS

REACTIONS (3)
  - Pancreatitis [Recovering/Resolving]
  - Headache [Unknown]
  - Stomatitis [Recovering/Resolving]

NARRATIVE: CASE EVENT DATE: 2015
